FAERS Safety Report 4326895-8 (Version None)
Quarter: 2004Q1

REPORT INFORMATION
  Report Type: 
  Country: None (occurrence: None)
  Receive Date: 20040319
  Receipt Date: 20040123
  Transmission Date: 20041129
  Serious: No
  Sender: FDA-Public Use
  Company Number: US-JNJFOC-20040105542

PATIENT
  Age: 25 Year
  Sex: Female
  Weight: 65.7716 kg

DRUGS (1)
  1. ORTHO EVRA [Suspect]
     Indication: DRUG USE FOR UNKNOWN INDICATION
     Dosage: 1 DOSE, 1 IN 1 WEEK, TRANSDERMAL
     Route: 062
     Dates: start: 20031101

REACTIONS (3)
  - HEADACHE [None]
  - METRORRHAGIA [None]
  - RASH [None]
